FAERS Safety Report 6544888-7 (Version None)
Quarter: 2010Q1

REPORT INFORMATION
  Report Type: 
  Country: None (occurrence: None)
  Receive Date: 20100115
  Receipt Date: 20100106
  Transmission Date: 20100710
  Serious: Yes (Other)
  Sender: FDA-Public Use
  Company Number: TRP_06373_2009

PATIENT
  Sex: Female

DRUGS (6)
  1. RIBASPHERE [Suspect]
     Indication: HEPATITIS C
     Dosage: (800 MG, DAILY) : (800 MG, DAILY)
     Dates: start: 20090501, end: 20090724
  2. RIBASPHERE [Suspect]
     Indication: HEPATITIS C
     Dosage: (800 MG, DAILY) : (800 MG, DAILY)
     Dates: start: 20090731
  3. PEGASYS [Suspect]
     Indication: HEPATITIS C
     Dosage: (180 UG 1X/WEEK) ; (90 MCG) ; (90 UG 1X/WEEK) ; (135 UG 1X/WEEK)
     Dates: start: 20090501, end: 20090101
  4. PEGASYS [Suspect]
     Indication: HEPATITIS C
     Dosage: (180 UG 1X/WEEK) ; (90 MCG) ; (90 UG 1X/WEEK) ; (135 UG 1X/WEEK)
     Dates: start: 20090731, end: 20090101
  5. PEGASYS [Suspect]
     Indication: HEPATITIS C
     Dosage: (180 UG 1X/WEEK) ; (90 MCG) ; (90 UG 1X/WEEK) ; (135 UG 1X/WEEK)
     Dates: start: 20090101, end: 20090724
  6. PEGASYS [Suspect]
     Indication: HEPATITIS C
     Dosage: (180 UG 1X/WEEK) ; (90 MCG) ; (90 UG 1X/WEEK) ; (135 UG 1X/WEEK)
     Dates: start: 20090901

REACTIONS (13)
  - ALOPECIA [None]
  - FATIGUE [None]
  - INFECTED SKIN ULCER [None]
  - INSOMNIA [None]
  - IRRITABILITY [None]
  - LETHARGY [None]
  - NASOPHARYNGITIS [None]
  - NAUSEA [None]
  - NEUTROPENIA [None]
  - NIGHTMARE [None]
  - OROPHARYNGEAL PAIN [None]
  - VOMITING [None]
  - WHITE BLOOD CELL COUNT DECREASED [None]
